FAERS Safety Report 18509833 (Version 1)
Quarter: 2020Q4

REPORT INFORMATION
  Report Type: Spontaneous
  Country: RO (occurrence: RO)
  Receive Date: 20201117
  Receipt Date: 20201117
  Transmission Date: 20210114
  Serious: Yes (Hospitalization, Other)
  Sender: FDA-Public Use
  Company Number: RO-REGENERON PHARMACEUTICALS, INC.-2020-80721

PATIENT

DRUGS (3)
  1. PRESTARIUM [PERINDOPRIL] [Concomitant]
     Indication: CARDIAC DISORDER
  2. METOPROLOL. [Concomitant]
     Active Substance: METOPROLOL
     Indication: CARDIAC DISORDER
  3. EYLEA [Suspect]
     Active Substance: AFLIBERCEPT
     Indication: AGE-RELATED MACULAR DEGENERATION
     Dosage: TOTAL OF ONE DOSE OF EYLEA
     Dates: start: 20200903, end: 20200903

REACTIONS (2)
  - Atrial fibrillation [Unknown]
  - Ischaemic stroke [Unknown]

NARRATIVE: CASE EVENT DATE: 202009
